FAERS Safety Report 20282096 (Version 1)
Quarter: 2022Q1

REPORT INFORMATION
  Report Type: Spontaneous
  Country: US (occurrence: None)
  Receive Date: 20220101
  Receipt Date: 20220101
  Transmission Date: 20220424
  Serious: No
  Sender: FDA-Public Use
  Company Number: None

PATIENT
  Age: 62 Year
  Sex: Female

DRUGS (2)
  1. BAMLANIVIMAB\ETESEVIMAB [Suspect]
     Active Substance: BAMLANIVIMAB\ETESEVIMAB
     Indication: Upper respiratory tract infection
     Dosage: FREQUENCY : ONCE;?
     Route: 042
     Dates: start: 20211216, end: 20211216
  2. BAMLANIVIMAB\ETESEVIMAB [Suspect]
     Active Substance: BAMLANIVIMAB\ETESEVIMAB
     Indication: COVID-19

REACTIONS (5)
  - Rash [None]
  - Erythema [None]
  - Erythema [None]
  - Infusion related reaction [None]
  - Feeling abnormal [None]

NARRATIVE: CASE EVENT DATE: 20211216
